FAERS Safety Report 4341560-9 (Version None)
Quarter: 2004Q2

REPORT INFORMATION
  Report Type: 
  Country: None (occurrence: None)
  Receive Date: 20040415
  Receipt Date: 20040402
  Transmission Date: 20050107
  Serious: Yes (Congenital Anomaly)
  Sender: FDA-Public Use
  Company Number: K200400500

PATIENT
  Sex: Male

DRUGS (1)
  1. NORDETTE-21 [Suspect]
     Dosage: TRANSPLACENTAL
     Route: 064
     Dates: start: 19980101, end: 19980101

REACTIONS (2)
  - CLEFT LIP AND PALATE [None]
  - DRUG EXPOSURE DURING PREGNANCY [None]
